FAERS Safety Report 14196775 (Version 1)
Quarter: 2017Q4

REPORT INFORMATION
  Report Type: Report from Study
  Country: CA (occurrence: CA)
  Receive Date: 20171116
  Receipt Date: 20171116
  Transmission Date: 20180321
  Serious: Yes (Other)
  Sender: FDA-Public Use
  Company Number: CA-GLAXOSMITHKLINE-CA2017GSK175392

PATIENT
  Sex: Male

DRUGS (14)
  1. DICLOFENAC [Suspect]
     Active Substance: DICLOFENAC
     Indication: PRODUCT USED FOR UNKNOWN INDICATION
  2. HUMIRA [Concomitant]
     Active Substance: ADALIMUMAB
     Dosage: UNK
     Dates: start: 2012, end: 2012
  3. ARTHROTEC [Concomitant]
     Active Substance: DICLOFENAC SODIUM\MISOPROSTOL
  4. HYDROCHLOROTHIAZIDE. [Concomitant]
     Active Substance: HYDROCHLOROTHIAZIDE
  5. METHOTREXATE. [Concomitant]
     Active Substance: METHOTREXATE
  6. SIMPONI [Concomitant]
     Active Substance: GOLIMUMAB
     Dosage: UNK
     Dates: start: 2013, end: 2014
  7. VIOXX [Concomitant]
     Active Substance: ROFECOXIB
  8. SULFASALAZINE. [Concomitant]
     Active Substance: SULFASALAZINE
  9. INDOMETHACIN. [Concomitant]
     Active Substance: INDOMETHACIN
  10. CELEBREX [Concomitant]
     Active Substance: CELECOXIB
  11. MELOXICAM. [Concomitant]
     Active Substance: MELOXICAM
  12. NAPROXEN. [Concomitant]
     Active Substance: NAPROXEN
  13. MISOPROSTOL. [Concomitant]
     Active Substance: MISOPROSTOL
  14. ENBREL [Concomitant]
     Active Substance: ETANERCEPT
     Dosage: UNK
     Dates: start: 2009, end: 2011

REACTIONS (4)
  - Osteochondrosis [Unknown]
  - Joint space narrowing [Unknown]
  - Exostosis [Unknown]
  - Intervertebral disc space narrowing [Unknown]
